FAERS Safety Report 13522892 (Version 7)
Quarter: 2019Q2

REPORT INFORMATION
  Report Type: Report from Study
  Country: US (occurrence: US)
  Receive Date: 20170508
  Receipt Date: 20190514
  Transmission Date: 20190711
  Serious: Yes (Other)
  Sender: FDA-Public Use
  Company Number: PHEH2017US013256

PATIENT
  Sex: Male

DRUGS (2)
  1. COSENTYX [Suspect]
     Active Substance: SECUKINUMAB
     Indication: PRODUCT USED FOR UNKNOWN INDICATION
     Dosage: 2 DF, UNK
     Route: 065
  2. COSENTYX [Suspect]
     Active Substance: SECUKINUMAB
     Dosage: UNK
     Route: 065

REACTIONS (13)
  - Musculoskeletal stiffness [Unknown]
  - Myalgia [Unknown]
  - Psoriasis [Unknown]
  - Eczema [Unknown]
  - Fatigue [Unknown]
  - Condition aggravated [Unknown]
  - Psoriatic arthropathy [Unknown]
  - Dysphonia [Unknown]
  - Rash [Unknown]
  - Joint stiffness [Unknown]
  - Nasopharyngitis [Unknown]
  - Pneumonia [Unknown]
  - Sinusitis [Unknown]
